FAERS Safety Report 5270122-4 (Version None)
Quarter: 2007Q1

REPORT INFORMATION
  Report Type: 
  Country: None (occurrence: None)
  Receive Date: 20070320
  Receipt Date: 20070319
  Transmission Date: 20070707
  Serious: Yes (Death, Hospitalization)
  Sender: FDA-Public Use
  Company Number: KP-BRISTOL-MYERS SQUIBB COMPANY-13028238

PATIENT
  Age: 62 Year
  Sex: Male

DRUGS (3)
  1. CETUXIMAB [Suspect]
     Indication: NON-SMALL CELL LUNG CANCER
     Route: 041
     Dates: start: 20050520, end: 20050610
  2. CISPLATIN [Suspect]
     Indication: NON-SMALL CELL LUNG CANCER
     Route: 042
     Dates: start: 20050520, end: 20050520
  3. VINORELBINE [Suspect]
     Indication: NON-SMALL CELL LUNG CANCER
     Route: 042
     Dates: start: 20050520, end: 20050530

REACTIONS (3)
  - MALIGNANT NEOPLASM PROGRESSION [None]
  - PNEUMONIA [None]
  - PNEUMONIA NECROTISING [None]
